FAERS Safety Report 24704991 (Version 2)
Quarter: 2025Q1

REPORT INFORMATION
  Report Type: Spontaneous
  Country: US (occurrence: US)
  Receive Date: 20241206
  Receipt Date: 20250206
  Transmission Date: 20250409
  Serious: No
  Sender: STALLERGENES
  Company Number: US-STALCOR-2024-AER-02278

PATIENT
  Sex: Male

DRUGS (1)
  1. PALFORZIA [Suspect]
     Active Substance: PEANUT
     Indication: Food allergy
     Dosage: LVL 10 AT 240MG DISPENSED ON 14-MAY-2024
     Route: 048

REACTIONS (2)
  - Cough [Recovered/Resolved]
  - Product dose omission issue [Recovered/Resolved]
